FAERS Safety Report 6092759-5 (Version None)
Quarter: 2009Q1

REPORT INFORMATION
  Report Type: 
  Country: None (occurrence: None)
  Receive Date: 20090225
  Receipt Date: 20090212
  Transmission Date: 20090719
  Serious: Yes (Other)
  Sender: FDA-Public Use
  Company Number: PHHY2009DE05452

PATIENT
  Age: 65 Year
  Sex: Male

DRUGS (9)
  1. DIOVAN [Suspect]
     Indication: HYPERTENSION
     Dosage: 160 MG, QD
     Dates: start: 20090101, end: 20090212
  2. DIOVAN [Suspect]
     Dosage: 80 MG, QD
     Dates: start: 20090213
  3. METFORMIN [Concomitant]
  4. NOVONORM [Concomitant]
  5. BISOPROLOL [Concomitant]
  6. ASS ^CT-ARZNEIMITTEL^ [Concomitant]
     Dosage: 100 MG, UNK
  7. ALLOPURINOL [Concomitant]
  8. FUROSEMID ^DAK^ [Concomitant]
  9. SIMVASTATIN [Concomitant]

REACTIONS (5)
  - APHONIA [None]
  - DIZZINESS [None]
  - EPISTAXIS [None]
  - EYE DISCHARGE [None]
  - PRESYNCOPE [None]
